FAERS Safety Report 5176426-8 (Version None)
Quarter: 2006Q4

REPORT INFORMATION
  Report Type: 
  Country: None (occurrence: None)
  Receive Date: 20061207
  Receipt Date: 20061121
  Transmission Date: 20070319
  Serious: Yes (Hospitalization)
  Sender: FDA-Public Use
  Company Number: DSA_29045_2006

PATIENT
  Age: 77 Year
  Sex: Male

DRUGS (7)
  1. RENIVACE [Suspect]
     Indication: HYPERTENSION
     Dosage: 2.5 MG Q DAY PO
     Route: 048
     Dates: start: 20061111, end: 20061121
  2. RENIVACE [Suspect]
     Indication: PROPHYLAXIS
     Dosage: 2.5 MG Q DAY PO
     Route: 048
     Dates: start: 20061111, end: 20061121
  3. DIOVAN [Suspect]
     Indication: HYPERTENSION
     Dosage: 80 MG Q DAY PO
     Route: 048
  4. DIOVAN [Suspect]
     Indication: PROPHYLAXIS
     Dosage: 80 MG Q DAY PO
     Route: 048
  5. EUGLUCON [Suspect]
     Dosage: 1.25 MG BID PO
     Route: 048
  6. OMEPRAL [Suspect]
     Dosage: 20 MG Q DAY UNK
  7. PANALDINE [Suspect]
     Indication: THROMBOSIS PROPHYLAXIS
     Dosage: 100 MG BID PO
     Route: 048

REACTIONS (1)
  - INTERSTITIAL LUNG DISEASE [None]
